FAERS Safety Report 7512602-4 (Version None)
Quarter: 2011Q2

REPORT INFORMATION
  Report Type: 
  Country: None (occurrence: None)
  Receive Date: 20110531
  Receipt Date: 20110527
  Transmission Date: 20111010
  Serious: Yes (Other)
  Sender: FDA-Public Use
  Company Number: US-PFIZER INC-2011115525

PATIENT
  Sex: Female
  Weight: 81.633 kg

DRUGS (6)
  1. IMITREX [Concomitant]
     Indication: MIGRAINE
     Dosage: UNK
  2. IMITREX [Concomitant]
     Indication: HEADACHE
  3. ATENOLOL [Concomitant]
     Indication: HYPERTENSION
     Dosage: UNK
  4. HYDROCHLOROTHIAZIDE [Concomitant]
     Indication: HYPERTENSION
     Dosage: UNK
  5. LYRICA [Suspect]
     Indication: BACK PAIN
     Dosage: 75 MG, 2X/DAY
     Route: 048
     Dates: start: 20110404, end: 20110512
  6. CRESTOR [Concomitant]
     Indication: BLOOD CHOLESTEROL INCREASED
     Dosage: UNK

REACTIONS (9)
  - AMNESIA [None]
  - AGITATION [None]
  - HEADACHE [None]
  - CONFUSIONAL STATE [None]
  - SWELLING [None]
  - TREMOR [None]
  - MOOD ALTERED [None]
  - NEUROMA [None]
  - DIZZINESS [None]
